FAERS Safety Report 15832636 (Version 2)
Quarter: 2019Q1

REPORT INFORMATION
  Report Type: Spontaneous
  Country: AT (occurrence: AT)
  Receive Date: 20190116
  Receipt Date: 20190213
  Transmission Date: 20190417
  Serious: Yes (Other)
  Sender: FDA-Public Use
  Company Number: AT-B.I. PHARMACEUTICALS,INC./RIDGEFIELD-2019-12-000170

PATIENT
  Age: 67 Year
  Sex: Male

DRUGS (54)
  1. PANTIP [Suspect]
     Active Substance: PANTOPRAZOLE SODIUM
     Dosage: 40 MG, UNK (1-0-0)
     Route: 065
  2. EFFENTORA [Suspect]
     Active Substance: FENTANYL CITRATE
     Indication: PRODUCT USED FOR UNKNOWN INDICATION
     Route: 065
  3. EFFENTORA [Suspect]
     Active Substance: FENTANYL CITRATE
     Route: 065
  4. EFFENTORA [Suspect]
     Active Substance: FENTANYL CITRATE
     Route: 065
  5. SUBOXONE [Suspect]
     Active Substance: BUPRENORPHINE HYDROCHLORIDE\NALOXONE HYDROCHLORIDE
     Dosage: (2 MG/0.5 MG UP TO 4 TIMES DAILY)
     Route: 048
  6. LEXOTANIL [Suspect]
     Active Substance: BROMAZEPAM
     Indication: PRODUCT USED FOR UNKNOWN INDICATION
     Route: 065
  7. DRONABINOL. [Suspect]
     Active Substance: DRONABINOL
     Indication: PRODUCT USED FOR UNKNOWN INDICATION
     Dosage: 6 DROP, 3 TIMES
     Route: 065
  8. QUETIAPINE. [Suspect]
     Active Substance: QUETIAPINE
     Indication: PRODUCT USED FOR UNKNOWN INDICATION
     Dosage: 25 MG, 0-0-1
     Route: 065
  9. LYRICA [Suspect]
     Active Substance: PREGABALIN
     Indication: PRODUCT USED FOR UNKNOWN INDICATION
     Route: 065
  10. SUBOXONE [Suspect]
     Active Substance: BUPRENORPHINE HYDROCHLORIDE\NALOXONE HYDROCHLORIDE
     Dosage: (4 TIMES/DAY 2 MG/0.5 MG)
     Route: 065
  11. SUBOXONE [Suspect]
     Active Substance: BUPRENORPHINE HYDROCHLORIDE\NALOXONE HYDROCHLORIDE
     Dosage: (8/2 MG 1-0-0)
     Route: 065
  12. DIPIDOLOR [Suspect]
     Active Substance: PIRITRAMIDE
     Indication: PRODUCT USED FOR UNKNOWN INDICATION
     Dosage: 15 MG, UNK (AS SHORT INFUSION)
     Route: 065
  13. TEMESTA [LORAZEPAM] [Suspect]
     Active Substance: LORAZEPAM
     Indication: PRODUCT USED FOR UNKNOWN INDICATION
     Dosage: 2.5 MG, UNK (FOR STRONG RESTLESSNESS)
     Route: 065
  14. HYDAL [Suspect]
     Active Substance: HYDROMORPHONE HYDROCHLORIDE
     Indication: PAIN
     Dosage: 4 MG, UNK (1-0-1)
     Route: 065
  15. SEROQUEL [Suspect]
     Active Substance: QUETIAPINE FUMARATE
     Dosage: UNK (0-0-100 MG)
     Route: 065
  16. SOLUVIT [Suspect]
     Active Substance: VITAMINS
     Indication: PRODUCT USED FOR UNKNOWN INDICATION
     Dosage: UNK
     Route: 065
  17. EFFENTORA [Suspect]
     Active Substance: FENTANYL CITRATE
     Route: 065
  18. BUPRENORPHINE. [Suspect]
     Active Substance: BUPRENORPHINE
     Indication: PRODUCT USED FOR UNKNOWN INDICATION
     Dosage: 140 MCG, UNK
     Route: 062
  19. SUBOXONE [Suspect]
     Active Substance: BUPRENORPHINE HYDROCHLORIDE\NALOXONE HYDROCHLORIDE
     Dosage: (8 MG / 2 MG (1 TIME 1 17:00)
     Route: 060
  20. TEMESTA [LORAZEPAM] [Suspect]
     Active Substance: LORAZEPAM
     Dosage: 2.5 MG, UNK (WHEN RESTLESS)
     Route: 065
  21. HYDAL [Suspect]
     Active Substance: HYDROMORPHONE HYDROCHLORIDE
     Dosage: 5.2 MG, UP TO 4 TIMES DAILY
     Route: 065
  22. LYRICA [Suspect]
     Active Substance: PREGABALIN
     Route: 065
  23. SUBOXONE [Suspect]
     Active Substance: BUPRENORPHINE HYDROCHLORIDE\NALOXONE HYDROCHLORIDE
     Dosage: (2 MG / 0.5 MG UP TO 4 TIMES IN CASE OF PAIN ATTACK)
     Route: 065
  24. SUBOXONE [Suspect]
     Active Substance: BUPRENORPHINE HYDROCHLORIDE\NALOXONE HYDROCHLORIDE
     Dosage: (2/0.5 MG UP TO 4 TIMES/DAY)
     Route: 065
  25. SUBOXONE [Suspect]
     Active Substance: BUPRENORPHINE HYDROCHLORIDE\NALOXONE HYDROCHLORIDE
     Dosage: 8 MG, UNK
     Route: 065
  26. DULOXETINE. [Suspect]
     Active Substance: DULOXETINE
     Dosage: 30 MG, UNK (1-1-0)
     Route: 065
  27. MIRTAZAPIN [Suspect]
     Active Substance: MIRTAZAPINE
     Indication: PRODUCT USED FOR UNKNOWN INDICATION
     Dosage: 30 MG, UNK (0-0-0-1)
     Route: 065
  28. PANTIP [Suspect]
     Active Substance: PANTOPRAZOLE SODIUM
     Indication: PRODUCT USED FOR UNKNOWN INDICATION
     Dosage: 40 MG, UNK (1-0-1)
     Route: 065
  29. BUPRENORPHINE. [Suspect]
     Active Substance: BUPRENORPHINE
     Dosage: 105 MCG, UNK
     Route: 062
  30. SUBOXONE [Suspect]
     Active Substance: BUPRENORPHINE HYDROCHLORIDE\NALOXONE HYDROCHLORIDE
     Dosage: 8 MG, DAILY (8 MG, DAILY (1 TIME/DAY PLUS ADDITIONAL 2 MG)
     Route: 065
  31. OMEGAVEN [Suspect]
     Active Substance: FISH OIL
     Indication: PRODUCT USED FOR UNKNOWN INDICATION
     Dosage: UNK
     Route: 065
  32. HYDAL [Suspect]
     Active Substance: HYDROMORPHONE HYDROCHLORIDE
     Dosage: 5.2 MG, UP TO 3 TIMES DAILY
     Route: 065
  33. HYDAL [Suspect]
     Active Substance: HYDROMORPHONE HYDROCHLORIDE
     Dosage: 5.2 MG, 2-3 TIMES DAILY
     Route: 065
  34. CATAPRESAN [Suspect]
     Active Substance: CLONIDINE
     Indication: PRODUCT USED FOR UNKNOWN INDICATION
     Route: 065
  35. CATAPRESAN [Suspect]
     Active Substance: CLONIDINE
     Dosage: 0.15 MG, UNK (WHEN RESTLESS 1 TIME/DAY)
     Route: 065
  36. PANTIP [Suspect]
     Active Substance: PANTOPRAZOLE SODIUM
     Dosage: 40 MG, UNK (1-0-0)
     Route: 065
  37. BUPRENORPHINE. [Suspect]
     Active Substance: BUPRENORPHINE
     Dosage: 105 MCG, UNK
     Route: 062
  38. BUPRENORPHINE. [Suspect]
     Active Substance: BUPRENORPHINE
     Dosage: 70 MCG, UNK
     Route: 062
  39. DULOXETINE. [Suspect]
     Active Substance: DULOXETINE
     Indication: PRODUCT USED FOR UNKNOWN INDICATION
     Dosage: 60 MG, 1-0-1
     Route: 065
  40. IMODIUM [Suspect]
     Active Substance: LOPERAMIDE HYDROCHLORIDE
     Indication: PRODUCT USED FOR UNKNOWN INDICATION
     Dosage: UNK (AFTER EVERY LIQUID STOOL)
     Route: 065
  41. PANTIP [Suspect]
     Active Substance: PANTOPRAZOLE SODIUM
     Dosage: 40 MG, UNK (1-0-0)
     Route: 065
  42. EFFENTORA [Suspect]
     Active Substance: FENTANYL CITRATE
     Route: 065
  43. EFFENTORA [Suspect]
     Active Substance: FENTANYL CITRATE
     Route: 065
  44. SUBOXONE [Suspect]
     Active Substance: BUPRENORPHINE HYDROCHLORIDE\NALOXONE HYDROCHLORIDE
     Indication: PAIN
     Dosage: (12 MG - 0 -  4 MG)
     Route: 065
  45. SUBOXONE [Suspect]
     Active Substance: BUPRENORPHINE HYDROCHLORIDE\NALOXONE HYDROCHLORIDE
     Dosage: (2 MG/ 0.5 MG UP TO 6 TIMES DAILY)
     Route: 065
  46. SUBOXONE [Suspect]
     Active Substance: BUPRENORPHINE HYDROCHLORIDE\NALOXONE HYDROCHLORIDE
     Dosage: (8 MG/2 MG 1-0-0 )
     Route: 048
  47. DULOXETINE. [Suspect]
     Active Substance: DULOXETINE
     Dosage: 60 MG, 2-0-0
     Route: 065
  48. HYDAL [Suspect]
     Active Substance: HYDROMORPHONE HYDROCHLORIDE
     Dosage: 2.6 MG, UNK
     Route: 065
  49. SEROQUEL [Suspect]
     Active Substance: QUETIAPINE FUMARATE
     Dosage: 25 MG, 0-0-0-1
     Route: 065
  50. PANTIP [Suspect]
     Active Substance: PANTOPRAZOLE SODIUM
     Dosage: 40 MG, UNK (1-0-1)
     Route: 048
  51. BUPRENORPHINE. [Suspect]
     Active Substance: BUPRENORPHINE
     Dosage: 140 MCG, UNK
     Route: 062
  52. FENTANYL. [Suspect]
     Active Substance: FENTANYL
     Indication: PRODUCT USED FOR UNKNOWN INDICATION
     Dosage: 600 MCG, BID (2 TIMES/DAY)
     Route: 065
  53. QUETIAPINE. [Suspect]
     Active Substance: QUETIAPINE
     Dosage: 100 MG, UNK (0-0-1)
     Route: 048
  54. SEROQUEL [Suspect]
     Active Substance: QUETIAPINE FUMARATE
     Indication: PRODUCT USED FOR UNKNOWN INDICATION
     Dosage: 25 MG, UNK (0-0-0-1)
     Route: 065

REACTIONS (11)
  - Drug dependence [Unknown]
  - Therapeutic response decreased [Unknown]
  - Decreased appetite [Unknown]
  - Diarrhoea [Unknown]
  - Tremor [Unknown]
  - Flatulence [Unknown]
  - Drug withdrawal syndrome [Recovered/Resolved]
  - Nausea [Unknown]
  - Abdominal distension [Unknown]
  - Vertigo [Unknown]
  - Depression [Unknown]
